FAERS Safety Report 24382389 (Version 1)
Quarter: 2024Q4

REPORT INFORMATION
  Report Type: Spontaneous
  Country: IE (occurrence: IE)
  Receive Date: 20241001
  Receipt Date: 20241001
  Transmission Date: 20250114
  Serious: Yes (Other)
  Sender: STRIDES
  Company Number: IE-STRIDES ARCOLAB LIMITED-2024SP012521

PATIENT
  Age: 30 Year
  Sex: Female

DRUGS (9)
  1. LETROZOLE [Suspect]
     Active Substance: LETROZOLE
     Indication: Ovulation induction
     Dosage: UNK
     Route: 065
  2. NALTREXONE [Suspect]
     Active Substance: NALTREXONE
     Indication: Prophylaxis
     Dosage: UNK
     Route: 065
  3. NALTREXONE [Suspect]
     Active Substance: NALTREXONE
     Dosage: 4.5 MILLIGRAM, QD, NIGHTLY
     Route: 065
  4. PRASTERONE [Suspect]
     Active Substance: PRASTERONE
     Indication: Androgen deficiency
     Dosage: UNK
     Route: 065
  5. PRASTERONE [Suspect]
     Active Substance: PRASTERONE
     Dosage: 20 MILLIGRAM, OD
     Route: 048
  6. PROGESTERONE [Suspect]
     Active Substance: PROGESTERONE
     Indication: Prophylaxis
     Dosage: 400 MILLIGRAM, BID
     Route: 065
  7. CLOMIPHENE [Suspect]
     Active Substance: CLOMIPHENE
     Indication: Ovulation induction
     Dosage: 50 MILLIGRAM, QD
     Route: 065
  8. GONADOTROPHIN, CHORIONIC [Suspect]
     Active Substance: GONADOTROPHIN, CHORIONIC
     Indication: Ovulation induction
     Dosage: 10000 INTERNATIONAL UNIT
     Route: 065
  9. GONADOTROPHIN, CHORIONIC [Suspect]
     Active Substance: GONADOTROPHIN, CHORIONIC
     Dosage: 2500 INTERNATIONAL UNIT
     Route: 065

REACTIONS (3)
  - Premature delivery [Unknown]
  - Maternal exposure during pregnancy [Unknown]
  - Drug ineffective for unapproved indication [Unknown]
